FAERS Safety Report 14060718 (Version 3)
Quarter: 2018Q2

REPORT INFORMATION
  Report Type: Report from Study
  Country: US (occurrence: US)
  Receive Date: 20171007
  Receipt Date: 20180605
  Transmission Date: 20180711
  Serious: Yes (Other)
  Sender: FDA-Public Use
  Company Number: PHEH2017US032148

PATIENT
  Age: 67 Year
  Sex: Female

DRUGS (1)
  1. COSENTYX [Suspect]
     Active Substance: SECUKINUMAB
     Indication: PSORIASIS
     Dosage: 150 MG, QMO
     Route: 058
     Dates: start: 20170531, end: 20170531

REACTIONS (8)
  - Urine analysis abnormal [Unknown]
  - Kidney infection [Recovering/Resolving]
  - Sunburn [Unknown]
  - Myalgia [Unknown]
  - Injection site bruising [Unknown]
  - Bone pain [Unknown]
  - Chromaturia [Unknown]
  - Pollakiuria [Unknown]

NARRATIVE: CASE EVENT DATE: 20171030
